FAERS Safety Report 21698691 (Version 2)
Quarter: 2022Q4

REPORT INFORMATION
  Report Type: Spontaneous
  Country: BR (occurrence: BR)
  Receive Date: 20221208
  Receipt Date: 20221223
  Transmission Date: 20230113
  Serious: Yes (Other)
  Sender: FDA-Public Use
  Company Number: BR-SA-2022SA497281

PATIENT
  Age: 64 Year
  Sex: Male
  Weight: 75.5 kg

DRUGS (16)
  1. THYMOGLOBULIN [Suspect]
     Active Substance: LAPINE T-LYMPHOCYTE IMMUNE GLOBULIN
     Indication: Immunosuppression
     Dosage: 225 MG, QD
     Route: 042
     Dates: start: 20220713, end: 20220714
  2. CEFAZOLIN SODIUM [Concomitant]
     Active Substance: CEFAZOLIN SODIUM
     Dosage: UNK UNK, Q8H
     Route: 042
     Dates: start: 20220713, end: 20220714
  3. DIPYRONE [Concomitant]
     Active Substance: DIPYRONE
     Dosage: UNK UNK, Q6H
     Route: 042
     Dates: start: 20220713, end: 20220714
  4. TACROLIMUS [Concomitant]
     Active Substance: TACROLIMUS
     Dosage: UNK UNK, Q12H
     Route: 048
     Dates: start: 20220714
  5. AZATHIOPRINE [Concomitant]
     Active Substance: AZATHIOPRINE
     Dosage: UNK UNK, Q12H
     Route: 048
     Dates: start: 20220714
  6. PREDNISONE [Concomitant]
     Active Substance: PREDNISONE
     Dosage: UNK UNK, QD
     Route: 048
     Dates: start: 20220714
  7. DEXLANSOPRAZOLE [Concomitant]
     Active Substance: DEXLANSOPRAZOLE
     Dosage: UNK UNK, QD
     Route: 048
     Dates: start: 20220715
  8. BACTRIM [Concomitant]
     Active Substance: SULFAMETHOXAZOLE\TRIMETHOPRIM
     Dosage: 400/80 MG 1X A DAY, QD
     Route: 048
     Dates: start: 20220713
  9. FOLIC ACID [Concomitant]
     Active Substance: FOLIC ACID
     Dosage: UNK UNK, QD
     Route: 048
     Dates: start: 20220916
  10. DOMPERIDONE [Concomitant]
     Active Substance: DOMPERIDONE
     Dosage: 3X A DAY, TID
     Route: 048
     Dates: start: 20220804
  11. CARVEDILOL [Concomitant]
     Active Substance: CARVEDILOL
     Dosage: 12H IN 12H; Q12H
     Route: 048
     Dates: start: 20220808
  12. WARFARIN [Concomitant]
     Active Substance: WARFARIN
     Dosage: UNK UNK, QD
     Route: 048
     Dates: start: 20220804
  13. HYDRALAZINE [Concomitant]
     Active Substance: HYDRALAZINE HYDROCHLORIDE
     Dosage: UNK UNK, Q12H
     Route: 048
     Dates: start: 20220907
  14. CITALOPRAM [Concomitant]
     Active Substance: CITALOPRAM HYDROBROMIDE
     Dosage: 1X A DAY,QD
     Route: 048
     Dates: start: 20220907, end: 20221007
  15. GABAPENTIN [Concomitant]
     Active Substance: GABAPENTIN
     Dosage: UNK UNK, QD
     Route: 048
     Dates: start: 20220907, end: 20221007
  16. ASPIRIN [Concomitant]
     Active Substance: ASPIRIN
     Dosage: UNK UNK, QD
     Route: 048
     Dates: start: 20220714

REACTIONS (2)
  - Transplant rejection [Unknown]
  - Drug ineffective [Unknown]
